FAERS Safety Report 10187342 (Version 1)
Quarter: 2014Q2

REPORT INFORMATION
  Report Type: Spontaneous
  Country: IT (occurrence: None)
  Receive Date: 20140520
  Receipt Date: 20140520
  Transmission Date: 20141212
  Serious: Yes (Hospitalization)
  Sender: FDA-Public Use
  Company Number: 2014P1004237

PATIENT
  Age: 71 Year
  Sex: Female

DRUGS (2)
  1. RANITIDINE HCL [Suspect]
     Indication: PROPHYLAXIS
     Dates: start: 20140204
  2. MEDROL [Suspect]
     Indication: OBSTRUCTIVE AIRWAYS DISORDER

REACTIONS (1)
  - Stevens-Johnson syndrome [None]
